FAERS Safety Report 22165827 (Version 2)
Quarter: 2023Q4

REPORT INFORMATION
  Report Type: Report from Study
  Country: PL (occurrence: PL)
  Receive Date: 20230403
  Receipt Date: 20231221
  Transmission Date: 20240110
  Serious: Yes (Hospitalization, Other)
  Sender: FDA-Public Use
  Company Number: PL-MLMSERVICE-20230321-4123060-1

PATIENT
  Age: 2 Month
  Sex: Male
  Weight: 4.1 kg

DRUGS (1)
  1. ACETAMINOPHEN [Suspect]
     Active Substance: ACETAMINOPHEN
     Indication: Product used for unknown indication
     Dosage: 150 MILLIGRAM/KILOGRAM TOTLA (SINGLE DOSE OF 150 MG/KG BW AT APPROXIMATELY 10:00 A.M. )
     Route: 065

REACTIONS (5)
  - Conjunctivitis [Unknown]
  - Purulent discharge [Unknown]
  - Overdose [Unknown]
  - Toxicity to various agents [Unknown]
  - Intentional product misuse to child [Unknown]
